FAERS Safety Report 6804159-8 (Version None)
Quarter: 2010Q2

REPORT INFORMATION
  Report Type: 
  Country: None (occurrence: None)
  Receive Date: 20100628
  Receipt Date: 20070517
  Transmission Date: 20101027
  Serious: No
  Sender: FDA-Public Use
  Company Number: US-PFIZER INC-2005117108

PATIENT
  Sex: Male
  Weight: 78.02 kg

DRUGS (7)
  1. XALATAN [Suspect]
     Indication: GLAUCOMA
     Route: 047
  2. XAL-EASE [Suspect]
     Dates: end: 20050101
  3. LIPITOR [Concomitant]
  4. IMDUR [Concomitant]
  5. NORVASC [Concomitant]
  6. AVANDIA [Concomitant]
  7. COZAAR [Concomitant]

REACTIONS (3)
  - ACCIDENTAL OVERDOSE [None]
  - DRUG ADMINISTRATION ERROR [None]
  - NO ADVERSE EVENT [None]
